FAERS Safety Report 5163191-3 (Version None)
Quarter: 2006Q4

REPORT INFORMATION
  Report Type: 
  Country: None (occurrence: None)
  Receive Date: 20061204
  Receipt Date: 20061122
  Transmission Date: 20070319
  Serious: Yes (Death)
  Sender: FDA-Public Use
  Company Number: BE-JNJFOC-20061105372

PATIENT
  Sex: Female

DRUGS (3)
  1. TOPAMAX [Suspect]
     Indication: MIGRAINE
     Route: 065
  2. IMITREX [Concomitant]
     Route: 065
  3. ZOMIG [Concomitant]
     Route: 065

REACTIONS (1)
  - COMPLETED SUICIDE [None]
